FAERS Safety Report 9972233 (Version 1)
Quarter: 2014Q1

REPORT INFORMATION
  Report Type: Spontaneous
  Country: CA (occurrence: None)
  Receive Date: 20140304
  Receipt Date: 20140304
  Transmission Date: 20141002
  Serious: Yes (Hospitalization)
  Sender: FDA-Public Use
  Company Number: CA-014828

PATIENT
  Age: 64 Year
  Sex: Male

DRUGS (12)
  1. DEGARELIX (FIRMAGON) (240 MG, 80 MG) [Suspect]
     Indication: PROSTATE CANCER
     Dates: start: 20130218, end: 20130218
  2. STATEX /00848101 [Concomitant]
  3. LAX-A-DAY [Concomitant]
  4. ZYTIGA [Concomitant]
  5. JAMP-CALCIUM+VITAMIN D [Concomitant]
  6. DEXILANT [Concomitant]
  7. DOCUSATE [Concomitant]
  8. RATIO-FENTANYL [Concomitant]
  9. PREDNISONE [Concomitant]
  10. VITAMIN D VOOR SENIOREN [Concomitant]
  11. ACETAMINOPHEN [Concomitant]
  12. PMS LACTULOSE [Concomitant]

REACTIONS (2)
  - Skin infection [None]
  - Rash pustular [None]
